FAERS Safety Report 16102903 (Version 6)
Quarter: 2020Q2

REPORT INFORMATION
  Report Type: Report from Study
  Country: None (occurrence: NL)
  Receive Date: 20190321
  Receipt Date: 20200430
  Transmission Date: 20200713
  Serious: Yes (Other)
  Sender: FDA-Public Use
  Company Number: NL-ABBVIE-18K-114-2232742-00

PATIENT
  Age: 72 Year
  Sex: Male
  Weight: 82 kg

DRUGS (11)
  1. TERRA-CORTRIL [Concomitant]
     Active Substance: HYDROCORTISONE ACETATE\OXYTETRACYCLINE HYDROCHLORIDE
     Indication: PRODUCT USED FOR UNKNOWN INDICATION
  2. DUODOPA [Suspect]
     Active Substance: CARBIDOPA\LEVODOPA
     Dosage: MD: 9,CD: 5.3, ED: 2.5, CND: 3.4,END: 2.0, 24 HRS THERAPY WITH 2 PUMPS AND 1.5 CASSETTE
     Route: 050
  3. DUODOPA [Suspect]
     Active Substance: CARBIDOPA\LEVODOPA
     Dosage: CDN: 3.7 ; EDN: 2.0; MD: 9.0; CDD: 5.8; EDN: 2.5
     Route: 050
  4. ROPINIROLE. [Concomitant]
     Active Substance: ROPINIROLE
     Indication: PRODUCT USED FOR UNKNOWN INDICATION
  5. DUODOPA [Suspect]
     Active Substance: CARBIDOPA\LEVODOPA
     Dosage: MD 9.0, CDD 5.6, EDD 2.5, CDN 3.7, EDN 2.0
     Route: 050
  6. DUODOPA [Suspect]
     Active Substance: CARBIDOPA\LEVODOPA
     Dosage: MD: 9, CD: 5.3, ED: 2.5, CND: 3.2, END: 2.0
     Route: 050
     Dates: start: 2018, end: 2018
  7. LACTULOSE. [Concomitant]
     Active Substance: LACTULOSE
     Indication: ABNORMAL FAECES
  8. DUODOPA [Suspect]
     Active Substance: CARBIDOPA\LEVODOPA
     Dosage: MD 9.5, CD 4.8, ED 2.5 ,ND 2.6, END 2
     Route: 050
     Dates: start: 2018, end: 2018
  9. DUODOPA [Suspect]
     Active Substance: CARBIDOPA\LEVODOPA
     Dosage: CD 6.0, ED 2.5
     Route: 050
  10. DUODOPA [Suspect]
     Active Substance: CARBIDOPA\LEVODOPA
     Dosage: MD 9.0, CD 4.9, ED 2.8, ND 2.6, END 2
     Route: 050
     Dates: start: 2018, end: 2018
  11. DUODOPA [Suspect]
     Active Substance: CARBIDOPA\LEVODOPA
     Indication: PARKINSON^S DISEASE
     Dosage: MD 8,CD 4.5, ED 2.5, ND 2.3, END 2
     Route: 050
     Dates: start: 20180108, end: 2018

REACTIONS (40)
  - Musculoskeletal stiffness [Recovered/Resolved]
  - Pollakiuria [Not Recovered/Not Resolved]
  - Mobility decreased [Not Recovered/Not Resolved]
  - Stoma site pain [Recovered/Resolved]
  - Intestinal polyp [Recovered/Resolved]
  - Asthenia [Not Recovered/Not Resolved]
  - Stoma site discharge [Recovered/Resolved]
  - Gait disturbance [Not Recovered/Not Resolved]
  - Hyperhidrosis [Not Recovered/Not Resolved]
  - Hyperkinesia [Not Recovered/Not Resolved]
  - Parkinsonism [Not Recovered/Not Resolved]
  - Hallucination [Unknown]
  - Stoma site inflammation [Unknown]
  - Nocturia [Unknown]
  - Bradykinesia [Unknown]
  - General physical health deterioration [Recovered/Resolved]
  - Visual impairment [Not Recovered/Not Resolved]
  - Abnormal faeces [Recovered/Resolved]
  - Obsessive-compulsive disorder [Unknown]
  - Stoma site pain [Recovered/Resolved]
  - Stoma site erythema [Recovered/Resolved]
  - Drug ineffective [Unknown]
  - Mobility decreased [Recovered/Resolved]
  - Abnormal faeces [Recovered/Resolved]
  - Abnormal faeces [Recovered/Resolved]
  - Fatigue [Not Recovered/Not Resolved]
  - Therapeutic product effect incomplete [Recovered/Resolved]
  - Dyskinesia [Recovering/Resolving]
  - Balance disorder [Not Recovered/Not Resolved]
  - Eye disorder [Not Recovered/Not Resolved]
  - Urticaria [Recovering/Resolving]
  - Abnormal dreams [Not Recovered/Not Resolved]
  - On and off phenomenon [Recovering/Resolving]
  - Dizziness [Recovered/Resolved]
  - Stoma site discharge [Recovered/Resolved]
  - Fibroma [Recovered/Resolved]
  - Malaise [Recovered/Resolved]
  - Muscle rigidity [Not Recovered/Not Resolved]
  - Nausea [Recovered/Resolved]
  - Stoma site pruritus [Recovered/Resolved]

NARRATIVE: CASE EVENT DATE: 2018
